FAERS Safety Report 11282139 (Version 1)
Quarter: 2015Q3

REPORT INFORMATION
  Report Type: Spontaneous
  Country: US (occurrence: US)
  Receive Date: 20150720
  Receipt Date: 20150720
  Transmission Date: 20151125
  Serious: No
  Sender: FDA-Public Use
  Company Number: US-009507513-1507USA007126

PATIENT
  Age: 37 Year
  Sex: Female

DRUGS (3)
  1. FOLLISTIM [Suspect]
     Active Substance: FOLLITROPIN
     Dosage: 150 IU, QD
  2. MENOPUR [Concomitant]
     Active Substance: FOLLICLE STIMULATING HORMONE BETA POLYPEPTIDE\LUTROPIN ALFA
  3. FOLLISTIM [Suspect]
     Active Substance: FOLLITROPIN
     Indication: INFERTILITY
     Dosage: 300 IU, QD
     Route: 058

REACTIONS (2)
  - Syncope [Recovered/Resolved]
  - Dizziness [Recovered/Resolved]

NARRATIVE: CASE EVENT DATE: 20150713
